FAERS Safety Report 15652951 (Version 1)
Quarter: 2018Q4

REPORT INFORMATION
  Report Type: Spontaneous
  Country: US (occurrence: US)
  Receive Date: 20181123
  Receipt Date: 20181123
  Transmission Date: 20190205
  Serious: Yes (Other)
  Sender: FDA-Public Use
  Company Number: PHHY2018US157118

PATIENT
  Sex: Male
  Weight: 1.95 kg

DRUGS (3)
  1. METHOTREXATE. [Suspect]
     Active Substance: METHOTREXATE
     Indication: FOETAL EXPOSURE DURING PREGNANCY
     Dosage: MATERNAL DOSE:65 MG
     Route: 064
  2. MIFEPRISTONE [Suspect]
     Active Substance: MIFEPRISTONE
     Indication: FOETAL EXPOSURE DURING PREGNANCY
     Dosage: MATERNAL DOSE: 200MG
     Route: 064
  3. MISOPROSTOL. [Suspect]
     Active Substance: MISOPROSTOL
     Indication: FOETAL EXPOSURE DURING PREGNANCY
     Dosage: MATERNAL DOSE: 80UG
     Route: 064

REACTIONS (10)
  - Genitalia external ambiguous [Unknown]
  - Bone disorder [Unknown]
  - Foetal exposure during pregnancy [Unknown]
  - Multiple congenital abnormalities [Unknown]
  - Low birth weight baby [Unknown]
  - Spinal deformity [Unknown]
  - Premature baby [Unknown]
  - Craniofacial deformity [Unknown]
  - Foetal growth restriction [Unknown]
  - Fallot^s tetralogy [Unknown]
